FAERS Safety Report 19270151 (Version 1)
Quarter: 2021Q2

REPORT INFORMATION
  Report Type: Spontaneous
  Country: US (occurrence: US)
  Receive Date: 20210518
  Receipt Date: 20210518
  Transmission Date: 20210717
  Serious: No
  Sender: FDA-Public Use
  Company Number: US-ASCENT PHARMACEUTICALS, INC.-2110650

PATIENT
  Age: 56 Year
  Sex: Male
  Weight: 81.82 kg

DRUGS (1)
  1. OXYCODONE AND ACETAMINOPHEN [Suspect]
     Active Substance: ACETAMINOPHEN\OXYCODONE HYDROCHLORIDE
     Indication: HEADACHE
     Route: 048
     Dates: start: 20210128

REACTIONS (4)
  - Abdominal discomfort [Unknown]
  - Eye irritation [Unknown]
  - Therapeutic product effect incomplete [Unknown]
  - Headache [Unknown]
